FAERS Safety Report 8958994 (Version 2)
Quarter: 2014Q2

REPORT INFORMATION
  Report Type: Report from Study
  Country: JP (occurrence: JP)
  Receive Date: 20121212
  Receipt Date: 20140617
  Transmission Date: 20141212
  Serious: No
  Sender: FDA-Public Use
  Company Number: PHHY2012JP113717

PATIENT
  Age: 51 Year
  Sex: Female

DRUGS (13)
  1. FTY 720 [Suspect]
     Indication: MULTIPLE SCLEROSIS RELAPSE
     Dosage: 0.5 MG, QD
     Route: 048
     Dates: start: 20120428
  2. MYONAL [Concomitant]
     Dosage: 150 MG, UNK
     Route: 048
     Dates: end: 20130307
  3. TEGRETOL [Concomitant]
     Dosage: 200 MG, UNK
     Route: 048
     Dates: end: 20130307
  4. TEGRETOL [Concomitant]
     Dosage: 400 MG, UNK
     Route: 048
     Dates: start: 20130308
  5. MYSLEE [Concomitant]
     Dosage: 10 MG, UNK
     Route: 048
  6. VESICARE [Concomitant]
     Dosage: 7.5 MG, UNK
     Route: 048
  7. LIORESAL [Concomitant]
     Dosage: 15 MG, UNK
     Route: 048
  8. PROMAC [Concomitant]
     Dosage: 150 MG, UNK
     Route: 048
  9. LOXONIN [Concomitant]
     Dosage: 180 MG, UNK
     Route: 048
  10. NAUZELIN [Concomitant]
     Dosage: 30 MG, UNK
     Route: 048
     Dates: start: 20120428, end: 20120429
  11. LYRICA [Concomitant]
     Dosage: 150 MG, UNK
     Route: 048
  12. IMURAN [Concomitant]
     Dosage: 100 MG, UNK
     Route: 048
  13. LAC B [Concomitant]
     Dosage: 30 MG, UNK
     Route: 048
     Dates: start: 20120705

REACTIONS (3)
  - Liver disorder [Recovered/Resolved]
  - Lymphocyte count decreased [Recovered/Resolved]
  - Cervical dysplasia [Not Recovered/Not Resolved]
